FAERS Safety Report 7414765-8 (Version None)
Quarter: 2011Q2

REPORT INFORMATION
  Report Type: 
  Country: None (occurrence: None)
  Receive Date: 20110414
  Receipt Date: 20110407
  Transmission Date: 20111010
  Serious: Yes (Other)
  Sender: FDA-Public Use
  Company Number: ES-SANOFI-AVENTIS-2011SA021310

PATIENT
  Sex: Male

DRUGS (12)
  1. URBASON [Interacting]
     Route: 042
  2. URBASON [Interacting]
     Route: 042
     Dates: start: 20110404, end: 20110407
  3. RANITIDINE [Concomitant]
  4. FUROSEMIDE [Concomitant]
  5. URBASON [Interacting]
     Route: 042
  6. LEVOTHYROXINE [Concomitant]
  7. DEXPANTHENOL [Concomitant]
  8. URBASON [Interacting]
     Route: 042
  9. PLAVIX [Suspect]
     Route: 048
     Dates: start: 20110101, end: 20110407
  10. URBASON [Interacting]
     Route: 042
     Dates: start: 20110407
  11. URBASON [Interacting]
     Indication: URTICARIA
     Route: 042
  12. PLUSVENT [Concomitant]
     Indication: CHRONIC OBSTRUCTIVE PULMONARY DISEASE

REACTIONS (3)
  - CONTUSION [None]
  - DRUG INTERACTION [None]
  - LIP SWELLING [None]
